FAERS Safety Report 25617330 (Version 1)
Quarter: 2025Q3

REPORT INFORMATION
  Report Type: Spontaneous
  Country: US (occurrence: None)
  Receive Date: 20250728
  Receipt Date: 20250728
  Transmission Date: 20251020
  Serious: Yes (Other)
  Sender: FDA-CTU
  Company Number: None

PATIENT
  Age: 56 Year
  Sex: Male
  Weight: 84.6 kg

DRUGS (3)
  1. CARVYKTI [Suspect]
     Active Substance: CILTACABTAGENE AUTOLEUCEL
     Indication: Plasma cell myeloma
     Route: 042
     Dates: start: 20240826, end: 20240826
  2. cyclophosphamide 300mg/m2 daily [Concomitant]
  3. fludarabine 30mg/m2 [Concomitant]

REACTIONS (6)
  - Autologous bone marrow transplantation therapy [None]
  - Cytokine release syndrome [None]
  - Hypotension [None]
  - Cauda equina syndrome [None]
  - Leukopenia [None]
  - Neutropenia [None]

NARRATIVE: CASE EVENT DATE: 20250626
